FAERS Safety Report 12153736 (Version 2)
Quarter: 2016Q2

REPORT INFORMATION
  Report Type: Report from Study
  Country: NL (occurrence: NL)
  Receive Date: 20160307
  Receipt Date: 20160519
  Transmission Date: 20160815
  Serious: Yes (Hospitalization, Other)
  Sender: FDA-Public Use
  Company Number: NL-AMGEN-NLDSL2016027284

PATIENT
  Age: 85 Year
  Sex: Female

DRUGS (1)
  1. ARANESP [Suspect]
     Active Substance: DARBEPOETIN ALFA
     Indication: NEPHROGENIC ANAEMIA
     Dosage: 40 MUG  (0.4 ML), Q4WK
     Route: 058

REACTIONS (3)
  - Dialysis [Unknown]
  - Pneumonia [Unknown]
  - Cystitis [Unknown]

NARRATIVE: CASE EVENT DATE: 201602
